FAERS Safety Report 18640783 (Version 2)
Quarter: 2021Q1

REPORT INFORMATION
  Report Type: Spontaneous
  Country: US (occurrence: US)
  Receive Date: 20201221
  Receipt Date: 20210104
  Transmission Date: 20210419
  Serious: Yes (Hospitalization)
  Sender: FDA-Public Use
  Company Number: US-DECIPHERA PHARMACEUTICALS LLC-2020-US-000710

PATIENT
  Age: 75 Year
  Sex: Male

DRUGS (1)
  1. QINLOCK [Suspect]
     Active Substance: RIPRETINIB
     Indication: GASTROINTESTINAL STROMAL TUMOUR
     Dosage: 150 MILLIGRAM, BID
     Route: 048
     Dates: start: 20200704

REACTIONS (4)
  - Product administration interrupted [Unknown]
  - Overdose [Unknown]
  - Pancreaticoduodenectomy [Unknown]
  - Post procedural complication [Unknown]

NARRATIVE: CASE EVENT DATE: 20201125
